FAERS Safety Report 14676942 (Version 11)
Quarter: 2019Q3

REPORT INFORMATION
  Report Type: Report from Study
  Country: CA (occurrence: CA)
  Receive Date: 20180324
  Receipt Date: 20190723
  Transmission Date: 20191004
  Serious: Yes (Hospitalization, Other)
  Sender: FDA-Public Use
  Company Number: CA-TAKEDA-2018TUS007040

PATIENT
  Age: 59 Year
  Sex: Female

DRUGS (13)
  1. VEDOLIZUMAB [Suspect]
     Active Substance: VEDOLIZUMAB
     Dosage: 300 MILLIGRAM, Q4WEEKS
     Route: 042
  2. VEDOLIZUMAB [Suspect]
     Active Substance: VEDOLIZUMAB
     Dosage: 300 MILLIGRAM, Q4WEEKS
     Route: 042
  3. VEDOLIZUMAB [Suspect]
     Active Substance: VEDOLIZUMAB
     Indication: COLITIS ULCERATIVE
     Dosage: 300 MILLIGRAM
     Route: 042
     Dates: start: 20161114, end: 20180319
  4. VEDOLIZUMAB [Suspect]
     Active Substance: VEDOLIZUMAB
     Dosage: 300 MILLIGRAM, Q4WEEKS
     Route: 042
     Dates: end: 20190702
  5. K PLUS [Concomitant]
     Dosage: UNK
     Dates: start: 201605
  6. VEDOLIZUMAB [Suspect]
     Active Substance: VEDOLIZUMAB
     Dosage: 300 MILLIGRAM
     Route: 042
     Dates: start: 20181003
  7. VEDOLIZUMAB [Suspect]
     Active Substance: VEDOLIZUMAB
     Dosage: 300 MILLIGRAM, Q4WEEKS
     Route: 042
     Dates: start: 20190226
  8. CALCIUM [Concomitant]
     Active Substance: CALCIUM
     Dosage: UNK
  9. ENTOCORT [Concomitant]
     Active Substance: BUDESONIDE
     Dosage: UNK
  10. VEDOLIZUMAB [Suspect]
     Active Substance: VEDOLIZUMAB
     Dosage: 300 MILLIGRAM
     Route: 042
  11. IRON [Concomitant]
     Active Substance: IRON
     Dosage: UNK
  12. PENTASA [Concomitant]
     Active Substance: MESALAMINE
     Dosage: UNK, QD
     Dates: start: 20160923
  13. ASACOL [Concomitant]
     Active Substance: MESALAMINE
     Dosage: 1600 MILLIGRAM, TID
     Dates: start: 20130201

REACTIONS (5)
  - Faecal calprotectin increased [Unknown]
  - Off label use [Unknown]
  - Drug ineffective [Unknown]
  - Colon cancer [Recovering/Resolving]
  - Intestinal obstruction [Unknown]

NARRATIVE: CASE EVENT DATE: 20180601
